FAERS Safety Report 5196859-3 (Version None)
Quarter: 2006Q4

REPORT INFORMATION
  Report Type: 
  Country: None (occurrence: None)
  Receive Date: 20061227
  Receipt Date: 20061218
  Transmission Date: 20070319
  Serious: Yes (Other)
  Sender: FDA-Public Use
  Company Number: 2006154844

PATIENT
  Sex: Female

DRUGS (6)
  1. ZYRTEC [Suspect]
     Indication: HYPERSENSITIVITY
  2. ZYRTEC [Suspect]
     Indication: RASH
  3. ZYRTEC [Suspect]
     Indication: SKIN REACTION
  4. ZYRTEC [Suspect]
     Indication: URTICARIA
  5. CELEBREX [Concomitant]
  6. ALLEGRA [Concomitant]

REACTIONS (3)
  - SCOTOMA [None]
  - SKIN REACTION [None]
  - VISUAL FIELD DEFECT [None]
